FAERS Safety Report 19775821 (Version 2)
Quarter: 2022Q1

REPORT INFORMATION
  Report Type: Spontaneous
  Country: US (occurrence: US)
  Receive Date: 20210901
  Receipt Date: 20220120
  Transmission Date: 20220423
  Serious: Yes (Hospitalization, Other)
  Sender: FDA-Public Use
  Company Number: US-ELI_LILLY_AND_COMPANY-US202108012590

PATIENT
  Age: 74 Year

DRUGS (1)
  1. GEMZAR [Suspect]
     Active Substance: GEMCITABINE HYDROCHLORIDE
     Indication: Product used for unknown indication
     Dosage: UNK UNK, UNKNOWN
     Route: 065

REACTIONS (5)
  - Confusional state [Recovered/Resolved]
  - Dehydration [Recovering/Resolving]
  - Lethargy [Recovering/Resolving]
  - Sinus tachycardia [Recovered/Resolved]
  - Pyrexia [Recovered/Resolved]
